FAERS Safety Report 7589190-X (Version None)
Quarter: 2011Q3

REPORT INFORMATION
  Report Type: 
  Country: None (occurrence: None)
  Receive Date: 20110705
  Receipt Date: 20110624
  Transmission Date: 20111222
  Serious: Yes (Hospitalization)
  Sender: FDA-Public Use
  Company Number: JP-SANOFI-AVENTIS-2011SA041613

PATIENT
  Age: 84 Year
  Sex: Female

DRUGS (4)
  1. DEZOLAM [Concomitant]
     Route: 048
  2. ATELEC [Concomitant]
     Indication: HYPERTENSION
     Route: 048
  3. AMARYL [Suspect]
     Indication: DIABETES MELLITUS
     Route: 065
  4. PRAVASTATIN SODIUM [Concomitant]
     Indication: HYPERLIPIDAEMIA
     Route: 048

REACTIONS (3)
  - HYPOGLYCAEMIA [None]
  - PNEUMONIA ASPIRATION [None]
  - LOSS OF CONSCIOUSNESS [None]
